FAERS Safety Report 25920840 (Version 1)
Quarter: 2025Q4

REPORT INFORMATION
  Report Type: Report from Study
  Country: RS (occurrence: RS)
  Receive Date: 20251014
  Receipt Date: 20251014
  Transmission Date: 20260117
  Serious: Yes (Death, Hospitalization)
  Sender: PFIZER
  Company Number: RS-PFIZER INC-PV202400082765

PATIENT
  Age: 66 Year
  Sex: Male
  Weight: 68.5 kg

DRUGS (5)
  1. ELRANATAMAB [Suspect]
     Active Substance: ELRANATAMAB
     Indication: Plasma cell myeloma refractory
     Dosage: COMPLETED 1ST CYCLE
     Route: 058
     Dates: start: 20240310, end: 20240405
  2. ACYCLOVIR [Concomitant]
     Active Substance: ACYCLOVIR
     Indication: Antiviral prophylaxis
     Dosage: 400 MG, 2X/DAY
  3. BACTRIM [Concomitant]
     Active Substance: SULFAMETHOXAZOLE\TRIMETHOPRIM
     Indication: Antibiotic prophylaxis
     Dosage: 480 MG, 2X2, 3X PER WEEK
  4. FORTECORTIN CAMPUS [Concomitant]
     Indication: Plasma cell myeloma
     Dosage: 12 MG, DAILY
  5. PANTOPRAZOLE SODIUM [Concomitant]
     Active Substance: PANTOPRAZOLE SODIUM
     Indication: Prophylaxis
     Dosage: 40 MG, 2X/DAY

REACTIONS (4)
  - Cytopenia [Fatal]
  - Cerebral haemorrhage [Fatal]
  - Plasma cell myeloma refractory [Fatal]
  - Malignant neoplasm progression [Fatal]

NARRATIVE: CASE EVENT DATE: 20240101
